FAERS Safety Report 4956356-4 (Version None)
Quarter: 2006Q1

REPORT INFORMATION
  Report Type: 
  Country: None (occurrence: None)
  Receive Date: 20060329
  Receipt Date: 20060223
  Transmission Date: 20060701
  Serious: Yes (Disabling, Other)
  Sender: FDA-Public Use
  Company Number: PHBS2006IT03150

PATIENT
  Age: 62 Year
  Sex: Female

DRUGS (9)
  1. TRIATEC [Concomitant]
     Route: 065
     Dates: start: 20020730
  2. ZOMETA [Suspect]
     Indication: METASTASES TO BONE
     Dosage: 4 MG, QMO
     Route: 042
     Dates: start: 20020604, end: 20050921
  3. AREDIA [Suspect]
     Indication: METASTASES TO BONE
     Dosage: 90 MG, QMO
     Route: 042
     Dates: start: 20000309, end: 20050507
  4. CLASTEON [Suspect]
     Indication: METASTASES TO BONE
     Dosage: 100 MG, UNK
     Route: 030
     Dates: start: 19970321, end: 20000308
  5. VINORELBINE [Concomitant]
     Dosage: 1 G EVERY 8/21 DAYS
     Route: 065
     Dates: start: 20020828, end: 20051123
  6. GLUCOPHAGE [Concomitant]
     Route: 065
     Dates: start: 20020730
  7. SOLOSA [Concomitant]
     Route: 065
     Dates: start: 20020306
  8. ARIMIDEX [Concomitant]
     Route: 065
     Dates: start: 19980129, end: 20051219
  9. FARLUTAL [Concomitant]
     Route: 065
     Dates: start: 19990302

REACTIONS (6)
  - BONE DISORDER [None]
  - BONE SCAN ABNORMAL [None]
  - EXCESSIVE GRANULATION TISSUE [None]
  - OSTEONECROSIS [None]
  - TOOTH ABSCESS [None]
  - TOOTH DISORDER [None]
